FAERS Safety Report 4720378-9 (Version None)
Quarter: 2005Q3

REPORT INFORMATION
  Report Type: 
  Country: None (occurrence: None)
  Receive Date: 20050719
  Receipt Date: 20050711
  Transmission Date: 20060218
  Serious: Yes (Other)
  Sender: FDA-Public Use
  Company Number: 2005078598

PATIENT
  Age: 43 Year
  Sex: Female
  Weight: 97.5234 kg

DRUGS (4)
  1. LIPITOR [Suspect]
     Indication: BLOOD CHOLESTEROL INCREASED
     Dosage: 10 MG (10 MG, 1 IN 1 D),ORAL
     Route: 048
     Dates: start: 20050216
  2. INSULIN (HUMULIN 70/30 (INSULIN HUMAN, INSULIN HUMAN INJECTION, ISOPHA [Concomitant]
  3. ALTACE [Concomitant]
  4. GLYCERL TRINITRATE (GLYCERL TRINITRATE) [Concomitant]

REACTIONS (1)
  - NO ADVERSE EFFECT [None]
